FAERS Safety Report 5094252-5 (Version None)
Quarter: 2006Q3

REPORT INFORMATION
  Report Type: 
  Country: None (occurrence: None)
  Receive Date: 20060831
  Receipt Date: 20060830
  Transmission Date: 20061208
  Serious: Yes (Death, Congenital Anomaly)
  Sender: FDA-Public Use
  Company Number: US-GLAXOSMITHKLINE-A0618669A

PATIENT
  Sex: Female
  Weight: 2.4 kg

DRUGS (3)
  1. LAMOTRIGINE [Suspect]
     Indication: DEPRESSION
     Dosage: 100MG PER DAY
     Dates: start: 20060331
  2. ANAFRANIL [Concomitant]
     Dosage: 1MG PER DAY
  3. ZOLOFT [Concomitant]
     Dosage: 50MG PER DAY

REACTIONS (7)
  - ASCITES [None]
  - CAESAREAN SECTION [None]
  - CARDIOMYOPATHY [None]
  - CONGENITAL TERATOMA [None]
  - DRUG EXPOSURE DURING PREGNANCY [None]
  - HYDROPS FOETALIS [None]
  - PULMONARY INTERSTITIAL EMPHYSEMA SYNDROME [None]
